FAERS Safety Report 4474098-9 (Version None)
Quarter: 2004Q4

REPORT INFORMATION
  Report Type: 
  Country: None (occurrence: None)
  Receive Date: 20041008
  Receipt Date: 20040930
  Transmission Date: 20050328
  Serious: Yes (Congenital Anomaly)
  Sender: FDA-Public Use
  Company Number: B0346808A

PATIENT
  Sex: 0

DRUGS (1)
  1. AMOXICILLIN TRIHYDRATE (GENERIC) (AMOXICILLIN) [Suspect]

REACTIONS (2)
  - CONGENITAL VENTRICULAR SEPTAL DEFECT [None]
  - DRUG EXPOSURE DURING PREGNANCY [None]
